FAERS Safety Report 7359631-1 (Version None)
Quarter: 2011Q1

REPORT INFORMATION
  Report Type: 
  Country: None (occurrence: None)
  Receive Date: 20110317
  Receipt Date: 20100420
  Transmission Date: 20110831
  Serious: No
  Sender: FDA-Public Use
  Company Number: US-PFIZER INC-2010041313

PATIENT
  Sex: Male

DRUGS (3)
  1. NORVASC [Suspect]
     Indication: BLOOD PRESSURE
     Dosage: 2.5, UNK
     Dates: start: 20100301, end: 20100401
  2. NORVASC [Suspect]
     Dosage: 10 MG, UNK
     Dates: start: 20100401
  3. BENICAR HCT [Suspect]
     Dosage: UNK

REACTIONS (1)
  - DRUG INEFFECTIVE [None]
